FAERS Safety Report 4300847-6 (Version None)
Quarter: 2004Q1

REPORT INFORMATION
  Report Type: 
  Country: None (occurrence: None)
  Receive Date: 20040220
  Receipt Date: 19991220
  Transmission Date: 20041129
  Serious: Yes (Hospitalization, Other)
  Sender: FDA-Public Use
  Company Number: WAES 99123673

PATIENT
  Age: 74 Year
  Sex: Male
  Weight: 65 kg

DRUGS (9)
  1. DIGOXIN [Concomitant]
     Dates: start: 19980101
  2. FUROSEMIDE [Concomitant]
     Dates: start: 19980101
  3. ISOSORBIDE-5-MONONITRATE [Concomitant]
     Dates: start: 19980101
  4. LISINOPRIL [Concomitant]
     Dates: start: 19980101
  5. METOPROLOL [Concomitant]
     Dates: start: 19991101
  6. NICORANDIL [Concomitant]
     Dates: start: 19980101
  7. OMEPRAZOLE [Concomitant]
     Dates: start: 19991001
  8. ZOCOR [Suspect]
     Indication: HYPERCHOLESTEROLAEMIA
     Route: 048
     Dates: start: 19991101, end: 19991205
  9. WARFARIN [Concomitant]
     Dates: start: 19980101

REACTIONS (5)
  - ASTHENIA [None]
  - MYALGIA [None]
  - MYOGLOBINURIA [None]
  - RENAL IMPAIRMENT [None]
  - RHABDOMYOLYSIS [None]
